FAERS Safety Report 17440603 (Version 1)
Quarter: 2020Q1

REPORT INFORMATION
  Report Type: Spontaneous
  Country: US (occurrence: US)
  Receive Date: 20200220
  Receipt Date: 20200220
  Transmission Date: 20200409
  Serious: Yes (Death, Hospitalization)
  Sender: FDA-Public Use
  Company Number: US-MYLANLABS-2020M1018895

PATIENT
  Age: 59 Year
  Sex: Male

DRUGS (10)
  1. PHENYLEPHRINE [Suspect]
     Active Substance: PHENYLEPHRINE HYDROCHLORIDE
     Indication: PRODUCT USED FOR UNKNOWN INDICATION
     Route: 065
  2. INSULIN [Concomitant]
     Active Substance: INSULIN NOS
     Indication: HYPERGLYCAEMIA
     Route: 065
  3. NOREPINEPHRINE. [Suspect]
     Active Substance: NOREPINEPHRINE
     Indication: PRODUCT USED FOR UNKNOWN INDICATION
     Route: 065
  4. ACTIVATED CHARCOAL. [Concomitant]
     Active Substance: ACTIVATED CHARCOAL
     Indication: PRODUCT USED FOR UNKNOWN INDICATION
     Route: 065
  5. RIBOFLAVIN [Concomitant]
     Active Substance: RIBOFLAVIN
     Indication: PRODUCT USED FOR UNKNOWN INDICATION
     Route: 065
  6. VASOPRESSIN. [Suspect]
     Active Substance: VASOPRESSIN
     Indication: PRODUCT USED FOR UNKNOWN INDICATION
     Route: 065
  7. METHYLENE BLUE. [Suspect]
     Active Substance: METHYLENE BLUE
     Indication: PRODUCT USED FOR UNKNOWN INDICATION
     Route: 065
  8. N-ACETYLCYSTEINE [Concomitant]
     Active Substance: ACETYLCYSTEINE
     Indication: PRODUCT USED FOR UNKNOWN INDICATION
     Route: 042
  9. ASCORBIC ACID. [Concomitant]
     Active Substance: ASCORBIC ACID
     Indication: PRODUCT USED FOR UNKNOWN INDICATION
     Route: 065
  10. EPINEPHRINE. [Suspect]
     Active Substance: EPINEPHRINE
     Indication: PRODUCT USED FOR UNKNOWN INDICATION
     Route: 065

REACTIONS (1)
  - Drug ineffective [Fatal]
